FAERS Safety Report 18238078 (Version 1)
Quarter: 2020Q3

REPORT INFORMATION
  Report Type: Spontaneous
  Country: TH (occurrence: TH)
  Receive Date: 20200907
  Receipt Date: 20200907
  Transmission Date: 20201103
  Serious: Yes (Death)
  Sender: FDA-Public Use
  Company Number: TH-BAXTER-2020BAX018266

PATIENT
  Age: 81 Year
  Sex: Male

DRUGS (1)
  1. DIANEAL LOW CALCIUM PERITONEAL DIALYSIS SOLUTION WITH DEXTROSE [Suspect]
     Active Substance: CALCIUM CHLORIDE\DEXTROSE\MAGNESIUM CHLORIDE\SODIUM CHLORIDE\SODIUM LACTATE
     Indication: PERITONEAL DIALYSIS
     Dosage: 1500 ML/CYCLE FOR 5 CYCLERS, 10 HOURS
     Route: 033
     Dates: start: 20200401, end: 20200722

REACTIONS (2)
  - Malnutrition [Fatal]
  - Decreased appetite [Unknown]

NARRATIVE: CASE EVENT DATE: 20200722
